FAERS Safety Report 7547166-2 (Version None)
Quarter: 2011Q2

REPORT INFORMATION
  Report Type: 
  Country: None (occurrence: None)
  Receive Date: 20110607
  Receipt Date: 20110527
  Transmission Date: 20111010
  Serious: Yes (Hospitalization, Other)
  Sender: FDA-Public Use
  Company Number: WAES 0902USA01259

PATIENT
  Age: 76 Year
  Sex: Male

DRUGS (11)
  1. REDOMEX [Concomitant]
  2. NEURONTIN [Concomitant]
  3. CAP VORINOSTAT [Suspect]
     Indication: MALIGNANT MELANOMA
     Dosage: 400 MG/DAILY
     Route: 048
     Dates: start: 20090106, end: 20090117
  4. CAP VORINOSTAT [Suspect]
     Indication: MALIGNANT MELANOMA
     Dosage: 400 MG/DAILY
     Route: 048
     Dates: start: 20090127, end: 20090204
  5. NOVO-NORM [Concomitant]
  6. IRBESARTAN [Concomitant]
  7. ZOLPIDEM TARTRATE [Concomitant]
  8. VELCADE [Suspect]
     Indication: MALIGNANT MELANOMA
     Dosage: 2.6 MG/1X
     Route: 042
     Dates: start: 20090204, end: 20090204
  9. VELCADE [Suspect]
     Indication: MALIGNANT MELANOMA
     Dosage: 2.6 MG/1X
     Route: 042
     Dates: start: 20090116, end: 20090117
  10. PRAVASINE [Concomitant]
  11. MEDROL [Concomitant]

REACTIONS (10)
  - STAPHYLOCOCCAL SEPSIS [None]
  - PULMONARY OEDEMA [None]
  - CARDIAC FAILURE CONGESTIVE [None]
  - BLOOD CREATININE INCREASED [None]
  - RESPIRATORY DISTRESS [None]
  - SHOCK [None]
  - PNEUMONIA [None]
  - WHITE BLOOD CELL COUNT DECREASED [None]
  - SEPSIS [None]
  - RIB FRACTURE [None]
